FAERS Safety Report 8969138 (Version 1)
Quarter: 2012Q4

REPORT INFORMATION
  Report Type: 
  Country: US (occurrence: US)
  Receive Date: 20121217
  Receipt Date: 20121217
  Transmission Date: 20130627
  Serious: No
  Sender: FDA-Public Use
  Company Number: US-009507513-1212USA004565

PATIENT
  Sex: Female

DRUGS (4)
  1. ZETIA [Suspect]
     Indication: BLOOD CHOLESTEROL INCREASED
     Dosage: 10 mg, qd
     Route: 048
     Dates: end: 20121206
  2. CRESTOR [Concomitant]
     Dosage: UNK
     Dates: end: 20121206
  3. LORAZEPAM [Concomitant]
  4. PAXIL [Concomitant]

REACTIONS (1)
  - Myalgia [Recovering/Resolving]
